FAERS Safety Report 14512136 (Version 1)
Quarter: 2018Q1

REPORT INFORMATION
  Report Type: Spontaneous
  Country: ES (occurrence: ES)
  Receive Date: 20180209
  Receipt Date: 20180209
  Transmission Date: 20180509
  Serious: Yes (Other)
  Sender: FDA-Public Use
  Company Number: ES-TEVA-2018-ES-852409

PATIENT
  Age: 20 Year
  Sex: Male

DRUGS (1)
  1. AMOXICILINA (108A) [Suspect]
     Active Substance: AMOXICILLIN
     Indication: OROPHARYNGEAL PAIN
     Dosage: NOT REPORTED
     Route: 048
     Dates: start: 20171216, end: 20171216

REACTIONS (3)
  - Urticaria [Recovered/Resolved]
  - Palatal oedema [Recovered/Resolved]
  - Muscle spasms [Recovered/Resolved]

NARRATIVE: CASE EVENT DATE: 20171216
